FAERS Safety Report 9235997 (Version 2)
Quarter: 2013Q2

REPORT INFORMATION
  Report Type: Spontaneous
  Country: IT (occurrence: IT)
  Receive Date: 20130417
  Receipt Date: 20130429
  Transmission Date: 20140414
  Serious: Yes (Hospitalization)
  Sender: FDA-Public Use
  Company Number: IT-BRISTOL-MYERS SQUIBB COMPANY-18764670

PATIENT
  Age: 79 Year
  Sex: Female

DRUGS (5)
  1. COUMADIN TABS 5 MG [Suspect]
     Indication: ATRIAL FIBRILLATION
     Dosage: 1 DF: 1/UNIT
     Route: 048
     Dates: start: 20130327
  2. SIMVASTATIN [Concomitant]
     Route: 048
  3. LACIREX [Concomitant]
     Dosage: 1DF=4 MG TABLETS
  4. NIFEDICOR [Concomitant]
     Indication: HYPERTENSIVE CRISIS
     Dosage: 20 MG/ML ORAL DROPS SOLUTION^
     Route: 048
     Dates: start: 20130327
  5. KARVEZIDE [Concomitant]
     Dosage: 1 DF: 1/UNIT
     Route: 048

REACTIONS (1)
  - Hypocoagulable state [Recovered/Resolved]
